FAERS Safety Report 11632851 (Version 1)
Quarter: 2015Q4

REPORT INFORMATION
  Report Type: Spontaneous
  Country: IT (occurrence: IT)
  Receive Date: 20151015
  Receipt Date: 20151015
  Transmission Date: 20160304
  Serious: Yes (Hospitalization)
  Sender: FDA-Public Use
  Company Number: PHHY2015IT123889

PATIENT
  Age: 59 Year
  Sex: Male

DRUGS (2)
  1. TAVOR [Suspect]
     Active Substance: LORAZEPAM
     Indication: DRUG ABUSE
     Dosage: 50 MG, ONCE/SINGLE
     Route: 048
     Dates: start: 20150702, end: 20150702
  2. MIRTAZAPINE. [Suspect]
     Active Substance: MIRTAZAPINE
     Indication: DRUG ABUSE
     Dosage: 4 DF, ONCE/SINGLE
     Route: 048
     Dates: start: 20150702, end: 20150702

REACTIONS (2)
  - Drug abuse [Unknown]
  - Sopor [Unknown]

NARRATIVE: CASE EVENT DATE: 20150702
